FAERS Safety Report 14682794 (Version 1)
Quarter: 2018Q1

REPORT INFORMATION
  Report Type: Spontaneous
  Country: GB (occurrence: GB)
  Receive Date: 20180327
  Receipt Date: 20180327
  Transmission Date: 20180509
  Serious: Yes (Other)
  Sender: FDA-Public Use
  Company Number: GB-TEVA-2018-GB-874751

PATIENT
  Age: 78 Year
  Sex: Female

DRUGS (13)
  1. TRIMETHOPRIM. [Concomitant]
     Active Substance: TRIMETHOPRIM
     Indication: URINARY TRACT INFECTION
     Dosage: 2 DOSAGE FORMS DAILY; FOR 7 DAYS
  2. SOLIFENACIN [Concomitant]
     Active Substance: SOLIFENACIN
     Dosage: 1 DOSAGE FORMS DAILY;
  3. ACITRETIN. [Concomitant]
     Active Substance: ACITRETIN
     Dosage: 1 DOSAGE FORMS DAILY;
  4. CAPASAL [Concomitant]
     Dosage: 1 DOSAGE FORMS DAILY;
  5. DOXAZOSIN [Suspect]
     Active Substance: DOXAZOSIN\DOXAZOSIN MESYLATE
     Route: 065
  6. SIMVASTATIN. [Concomitant]
     Active Substance: SIMVASTATIN
     Dosage: 1 DOSAGE FORMS DAILY; NIGHT.
  7. OILATUM [Concomitant]
     Route: 065
  8. ATORVASTATIN [Concomitant]
     Active Substance: ATORVASTATIN
     Dosage: 1 DOSAGE FORMS DAILY; NIGHT.
  9. EPADERM [Concomitant]
     Active Substance: MINERAL OIL\PETROLATUM\WAX, EMULSIFYING
     Dosage: USE AS DIRECTED.
  10. KETOPROFEN. [Concomitant]
     Active Substance: KETOPROFEN
     Dosage: 2 DOSAGE FORMS DAILY; APPLY.
  11. DERMOL [Concomitant]
     Active Substance: BENZALKONIUM CHLORIDE\CHLORHEXIDINE HYDROCHLORIDE\ISOPROPYL MYRISTATE\PARAFFIN
     Dosage: APPLY TO SKIN OR USE AS SOAP SUBSTITUTE.
     Route: 061
  12. NITROFURANTOIN. [Concomitant]
     Active Substance: NITROFURANTOIN
     Dosage: 2 DOSAGE FORMS DAILY; FOR 7 DAYS
  13. DOVOBET [Concomitant]
     Active Substance: BETAMETHASONE\CALCIPOTRIENE
     Dosage: 1 DOSAGE FORMS DAILY; APPLY

REACTIONS (5)
  - Wheezing [Unknown]
  - Malaise [Recovered/Resolved]
  - Dizziness [Unknown]
  - Chest discomfort [Recovered/Resolved]
  - Dry mouth [Recovered/Resolved]
